FAERS Safety Report 19150065 (Version 3)
Quarter: 2022Q4

REPORT INFORMATION
  Report Type: Spontaneous
  Country: CA (occurrence: CA)
  Receive Date: 20210417
  Receipt Date: 20221014
  Transmission Date: 20230113
  Serious: Yes (Life-Threatening, Hospitalization, Other)
  Sender: FDA-Public Use
  Company Number: NVSC2021CA085425

PATIENT
  Age: 32 Year
  Sex: Female

DRUGS (6)
  1. ATROPINE SULFATE [Suspect]
     Active Substance: ATROPINE SULFATE
     Indication: Product used for unknown indication
     Dosage: 0.6 MG
     Route: 065
  2. PHENYLEPHRINE HYDROCHLORIDE [Suspect]
     Active Substance: PHENYLEPHRINE HYDROCHLORIDE
     Indication: Product used for unknown indication
     Dosage: 50 UG
     Route: 047
  3. EPHEDRINE [Suspect]
     Active Substance: EPHEDRINE
     Indication: Spinal anaesthesia
     Dosage: 10 MG
     Route: 040
  4. FENTANYL [Suspect]
     Active Substance: FENTANYL
     Indication: Spinal anaesthesia
     Dosage: 20 MG
     Route: 065
  5. MORPHINE [Suspect]
     Active Substance: MORPHINE
     Indication: Spinal anaesthesia
     Dosage: 150 UG
     Route: 065
  6. BUPIVACAINE [Suspect]
     Active Substance: BUPIVACAINE
     Indication: Spinal anaesthesia
     Dosage: 12 MG
     Route: 065

REACTIONS (9)
  - Bradycardia [Not Recovered/Not Resolved]
  - Anterior spinal artery syndrome [Not Recovered/Not Resolved]
  - Hypotension [Not Recovered/Not Resolved]
  - Neuralgia [Not Recovered/Not Resolved]
  - Paralysis [Not Recovered/Not Resolved]
  - Rhythm idioventricular [Not Recovered/Not Resolved]
  - Spinal cord injury [Not Recovered/Not Resolved]
  - Urinary retention [Not Recovered/Not Resolved]
  - Maternal exposure during pregnancy [Unknown]
